FAERS Safety Report 7737166-1 (Version None)
Quarter: 2011Q3

REPORT INFORMATION
  Report Type: 
  Country: None (occurrence: None)
  Receive Date: 20110908
  Receipt Date: 20110722
  Transmission Date: 20111222
  Serious: No
  Sender: FDA-Public Use
  Company Number: US-BAYER-2011-066402

PATIENT
  Age: 70 Year
  Sex: Female

DRUGS (3)
  1. BAYER EXTRA STRENGTH BACK + BODY PAIN [Suspect]
     Indication: ARTHRITIS
     Route: 048
  2. ALEVE (CAPLET) [Suspect]
     Indication: ARTHRITIS
     Route: 048
  3. ASPIRIN [Suspect]
     Indication: ARTHRITIS
     Route: 048

REACTIONS (1)
  - NAUSEA [None]
